FAERS Safety Report 12297197 (Version 3)
Quarter: 2016Q2

REPORT INFORMATION
  Report Type: Report from Study
  Country: US (occurrence: US)
  Receive Date: 20160422
  Receipt Date: 20160506
  Transmission Date: 20160815
  Serious: Yes (Other)
  Sender: FDA-Public Use
  Company Number: US-MDT-ADR-2016-00268

PATIENT
  Age: 44 Year
  Sex: Female

DRUGS (16)
  1. MORPHINE SULPHATE [Suspect]
     Active Substance: MORPHINE SULFATE
     Dosage: 5.948 MG/DAY
     Route: 037
     Dates: start: 20150924
  2. BUPIVACAINE. [Suspect]
     Active Substance: BUPIVACAINE
     Dosage: 8.404 MG/DAY
     Route: 037
     Dates: start: 20160218
  3. CLONIDINE. [Suspect]
     Active Substance: CLONIDINE
     Dosage: 42.02 MCG/DAY
     Route: 037
     Dates: start: 20160414
  4. CLONIDINE. [Suspect]
     Active Substance: CLONIDINE
     Dosage: 39.65 MCG/DAY
     Route: 037
     Dates: start: 20150924
  5. BUPIVACAINE. [Suspect]
     Active Substance: BUPIVACAINE
     Dosage: 8.404 MG/DAY
     Route: 037
     Dates: start: 20160414
  6. COMPOUNDED BACLOFEN [Suspect]
     Active Substance: BACLOFEN
     Dosage: 297.39 MCG/DAY
     Route: 037
     Dates: start: 20150924
  7. COMPOUNDED BACLOFEN [Suspect]
     Active Substance: BACLOFEN
     Dosage: 299.83 MCG/DAY
     Route: 037
     Dates: start: 20160120
  8. COMPOUNDED BACLOFEN [Suspect]
     Active Substance: BACLOFEN
     Dosage: 315.14 MCG/DAY
     Route: 037
     Dates: start: 20160218
  9. CLONIDINE. [Suspect]
     Active Substance: CLONIDINE
     Dosage: 39.98 MCG/DAY
     Route: 037
     Dates: start: 20160120
  10. MORPHINE [Suspect]
     Active Substance: MORPHINE
     Dosage: 6.303 MG/DAY
     Route: 037
     Dates: start: 20160414
  11. CLONIDINE. [Suspect]
     Active Substance: CLONIDINE
     Dosage: 42.02 MCG/DAY
     Route: 037
     Dates: start: 20160218
  12. BUPIVACAINE. [Suspect]
     Active Substance: BUPIVACAINE
     Dosage: 7.930 MG/DAY
     Route: 037
     Dates: start: 20150924
  13. COMPOUNDED BACLOFEN [Suspect]
     Active Substance: BACLOFEN
     Dosage: 420.2 MCG/DAY
     Route: 037
     Dates: start: 20160414
  14. MORPHINE [Suspect]
     Active Substance: MORPHINE
     Dosage: 6.303 MG/DAY
     Route: 037
     Dates: start: 20160218
  15. MORPHINE [Suspect]
     Active Substance: MORPHINE
     Dosage: 5.997 MG/DAY
     Route: 037
     Dates: start: 20160120
  16. BUPIVACAINE. [Suspect]
     Active Substance: BUPIVACAINE
     Dosage: 7.995 MG/DAY
     Route: 037
     Dates: start: 20160120

REACTIONS (9)
  - Drug withdrawal syndrome [Recovered/Resolved]
  - Medical device site discharge [Not Recovered/Not Resolved]
  - Hypoaesthesia [Recovered/Resolved]
  - Adverse drug reaction [Recovered/Resolved]
  - Medical device site pain [Recovered/Resolved]
  - Impaired healing [Not Recovered/Not Resolved]
  - Medical device site vesicles [Recovered/Resolved]
  - Medical device site infection [Recovered/Resolved]
  - Medical device site erythema [Recovered/Resolved]

NARRATIVE: CASE EVENT DATE: 20160128
